FAERS Safety Report 24076714 (Version 1)
Quarter: 2024Q3

REPORT INFORMATION
  Report Type: Spontaneous
  Country: US (occurrence: US)
  Receive Date: 20240711
  Receipt Date: 20240711
  Transmission Date: 20241016
  Serious: No
  Sender: ROCHE
  Company Number: US-ROCHE-10000011961

PATIENT

DRUGS (2)
  1. XOLAIR [Suspect]
     Active Substance: OMALIZUMAB
     Indication: Product used for unknown indication
     Route: 065
  2. XOLAIR [Suspect]
     Active Substance: OMALIZUMAB

REACTIONS (7)
  - Malaise [Unknown]
  - Influenza like illness [Unknown]
  - Sinus congestion [Unknown]
  - Pharyngeal swelling [Unknown]
  - Pruritus [Unknown]
  - Urticaria [Unknown]
  - Adverse food reaction [Unknown]
